FAERS Safety Report 8773899 (Version 2)
Quarter: 2012Q4

REPORT INFORMATION
  Report Type: 
  Country: US (occurrence: US)
  Receive Date: 20120907
  Receipt Date: 20121017
  Transmission Date: 20130627
  Serious: No
  Sender: FDA-Public Use
  Company Number: US-B.I. PHARMACEUTICALS,INC./RIDGEFIELD-2012-BP-21470BP

PATIENT
  Age: 67 Year
  Sex: Male

DRUGS (7)
  1. SPIRIVA [Suspect]
     Indication: CHRONIC OBSTRUCTIVE PULMONARY DISEASE
     Dosage: 18 mcg
     Route: 055
     Dates: start: 20120601
  2. ADVAIR [Suspect]
  3. METFORMIN [Concomitant]
     Indication: TYPE 2 DIABETES MELLITUS
     Dates: start: 2009
  4. AMLODIPINE [Concomitant]
     Indication: HYPERTENSION
     Dates: start: 2007
  5. AMBIEN [Concomitant]
     Indication: INSOMNIA
     Dates: start: 2010
  6. VITAMIN B [Concomitant]
     Indication: SUPPLEMENTATION THERAPY
     Dates: start: 2007
  7. CRESTOR [Concomitant]
     Indication: BLOOD CHOLESTEROL INCREASED
     Dates: start: 2006

REACTIONS (4)
  - Lung infection [Recovered/Resolved]
  - Lung infection [Not Recovered/Not Resolved]
  - Dyspnoea [Recovered/Resolved]
  - Dyspnoea [Not Recovered/Not Resolved]
